FAERS Safety Report 10176133 (Version 2)
Quarter: 2014Q2

REPORT INFORMATION
  Report Type: Spontaneous
  Country: US (occurrence: None)
  Receive Date: 20140416
  Receipt Date: 20140604
  Transmission Date: 20141212
  Serious: Yes (Hospitalization)
  Sender: FDA-Public Use
  Company Number: 163-POMAL-14020430

PATIENT
  Age: 46 Year
  Sex: Female

DRUGS (7)
  1. POMALYST [Suspect]
     Indication: PLASMA CELL MYELOMA
     Dosage: 1 IN 1 D
     Route: 048
     Dates: start: 20131107
  2. ZOMETA (ZOLEDRONIC ACID) [Concomitant]
  3. CALCIUM (CALCIUM) [Concomitant]
  4. MULTIVITAMINS (MULTIVITAMINS) [Concomitant]
  5. FOLIC ACID (FOLIC ACID) [Concomitant]
  6. ACYCLOVIR (ACICLOVIR) [Concomitant]
  7. IRON (IRON) [Concomitant]

REACTIONS (1)
  - Urinary tract infection [None]
